FAERS Safety Report 8962288 (Version 1)
Quarter: 2012Q4

REPORT INFORMATION
  Report Type: 
  Country: DE (occurrence: DE)
  Receive Date: 20121212
  Receipt Date: 20121212
  Transmission Date: 20130627
  Serious: Yes (Other)
  Sender: FDA-Public Use
  Company Number: DE-TEVA-373092GER

PATIENT

DRUGS (1)
  1. BISOPROLOL [Suspect]
     Route: 064

REACTIONS (6)
  - Thrombocytopenia [Unknown]
  - Hypoglycaemia [Unknown]
  - Polycythaemia [Unknown]
  - Maternal drugs affecting foetus [None]
  - Hypoglycaemia neonatal [None]
  - Thrombocytopenia neonatal [None]
